FAERS Safety Report 15048704 (Version 2)
Quarter: 2020Q2

REPORT INFORMATION
  Report Type: Spontaneous
  Country: NL (occurrence: NL)
  Receive Date: 20180622
  Receipt Date: 20200507
  Transmission Date: 20200713
  Serious: Yes (Other)
  Sender: FDA-Public Use
  Company Number: NL-TEVA-2018-NL-911571

PATIENT
  Age: 59 Year
  Sex: Male

DRUGS (8)
  1. VITAMINE D [Concomitant]
     Active Substance: CHOLECALCIFEROL
     Dosage: UNKNOWN, UNKNOWN
     Route: 065
  2. METOPROLOL. [Concomitant]
     Active Substance: METOPROLOL
     Dosage: 1 DOSAGE FORMS DAILY; UNKNOWN, 1X / D
     Dates: start: 20170629
  3. INFLIXIMAB (INFLECTRA) [Concomitant]
     Dosage: 5MG/KG, 1X/8W
     Dates: start: 20180125
  4. INDOMETACINE [Suspect]
     Active Substance: INDOMETHACIN
     Indication: SPONDYLITIS
     Dosage: AS REQUIRED,25MG, ZN
     Dates: end: 20180201
  5. SIMVASTATINE [Concomitant]
     Active Substance: SIMVASTATIN
     Dosage: 40 MILLIGRAM DAILY;
  6. OMEPRAZOL [Concomitant]
     Active Substance: OMEPRAZOLE
     Dosage: 40 MILLIGRAM DAILY;
  7. VALSARTAN. [Concomitant]
     Active Substance: VALSARTAN
     Dosage: UNKNOWN, 2X / D
     Dates: start: 20170629
  8. PARACETAMOL [Concomitant]
     Active Substance: ACETAMINOPHEN
     Dosage: 1000MG, ZN

REACTIONS (1)
  - Renal impairment [Recovered/Resolved]

NARRATIVE: CASE EVENT DATE: 20180201
